FAERS Safety Report 6808788-7 (Version None)
Quarter: 2010Q2

REPORT INFORMATION
  Report Type: 
  Country: None (occurrence: None)
  Receive Date: 20100630
  Receipt Date: 20090924
  Transmission Date: 20101027
  Serious: No
  Sender: FDA-Public Use
  Company Number: US-PFIZER INC-2009251867

PATIENT

DRUGS (1)
  1. VIAGRA [Suspect]
     Dosage: 100 MG, AS NEEDED
     Route: 048

REACTIONS (1)
  - HEADACHE [None]
